FAERS Safety Report 6430850-1 (Version None)
Quarter: 2009Q4

REPORT INFORMATION
  Report Type: 
  Country: None (occurrence: None)
  Receive Date: 20091106
  Receipt Date: 20091102
  Transmission Date: 20100525
  Serious: Yes (Other)
  Sender: FDA-Public Use
  Company Number: US-MERCK-0911USA00184

PATIENT
  Age: 60 Year
  Sex: Female

DRUGS (3)
  1. COZAAR [Suspect]
     Indication: HYPERTENSION
     Route: 048
     Dates: start: 20090901, end: 20091001
  2. METOPROLOL [Concomitant]
     Route: 065
  3. MULTIVITAMIN [Concomitant]
     Route: 065

REACTIONS (11)
  - BLOOD PRESSURE INCREASED [None]
  - CHEST PAIN [None]
  - DEPRESSION [None]
  - DRUG ADMINISTRATION ERROR [None]
  - DYSURIA [None]
  - FEELING ABNORMAL [None]
  - HYPOAESTHESIA [None]
  - LETHARGY [None]
  - MUSCULOSKELETAL PAIN [None]
  - MYALGIA [None]
  - URINARY TRACT DISORDER [None]
